FAERS Safety Report 17850708 (Version 4)
Quarter: 2021Q3

REPORT INFORMATION
  Report Type: Spontaneous
  Country: US (occurrence: US)
  Receive Date: 20200602
  Receipt Date: 20210830
  Transmission Date: 20211014
  Serious: Yes (Hospitalization, Other)
  Sender: FDA-Public Use
  Company Number: US-SA-2020SA137517

PATIENT
  Sex: Male

DRUGS (12)
  1. NORCO [Concomitant]
     Active Substance: ACETAMINOPHEN\HYDROCODONE BITARTRATE
     Indication: PAIN
     Dosage: Q4H; 5?325 MG TAKE 1?2 TABLETS
     Route: 048
  2. ZESTRIL [Concomitant]
     Active Substance: LISINOPRIL
     Dosage: 20 MG, QD
     Route: 048
  3. COLACE [Concomitant]
     Active Substance: DOCUSATE SODIUM
     Dosage: 100 MG, BID
     Route: 048
  4. AMLODIPINE BESYLATE. [Concomitant]
     Active Substance: AMLODIPINE BESYLATE
     Dosage: 5 MG, QD
     Route: 048
     Dates: start: 20141106
  5. LOVENOX [Concomitant]
     Active Substance: ENOXAPARIN SODIUM
     Dosage: 100 MG
     Route: 058
     Dates: start: 20150407
  6. ZANTAC 75 [Suspect]
     Active Substance: RANITIDINE HYDROCHLORIDE
     Dosage: 75 MG, QD
     Dates: start: 2012
  7. PRINIVIL [Concomitant]
     Active Substance: LISINOPRIL
     Dosage: 20 MG, QD
     Route: 048
     Dates: start: 20141106
  8. GEMFIBROZIL. [Concomitant]
     Active Substance: GEMFIBROZIL
     Dosage: UNK
     Route: 048
     Dates: start: 20141216
  9. WARFARIN [Concomitant]
     Active Substance: WARFARIN
     Dosage: 5 MG
     Route: 048
  10. ZANTAC 75 [Suspect]
     Active Substance: RANITIDINE HYDROCHLORIDE
     Dosage: 150 MG, QD
     Dates: end: 2014
  11. RANITIDINE HYDROCHLORIDE. [Suspect]
     Active Substance: RANITIDINE HYDROCHLORIDE
     Dosage: UNK
  12. WARFARIN SODIUM. [Concomitant]
     Active Substance: WARFARIN SODIUM
     Dosage: 5 MG
     Dates: start: 20141106

REACTIONS (13)
  - Unevaluable event [Unknown]
  - Renal mass [Unknown]
  - Hyperplasia [Unknown]
  - Hydronephrosis [Unknown]
  - Renal cyst [Unknown]
  - Carcinogenicity [Unknown]
  - Neoplasm malignant [Unknown]
  - Renal cancer [Unknown]
  - Emotional distress [Unknown]
  - Diverticulum intestinal [Unknown]
  - Pain [Unknown]
  - Anhedonia [Unknown]
  - Multiple injuries [Unknown]

NARRATIVE: CASE EVENT DATE: 20140207
